FAERS Safety Report 8423754-6 (Version None)
Quarter: 2012Q2

REPORT INFORMATION
  Report Type: 
  Country: None (occurrence: None)
  Receive Date: 20120608
  Receipt Date: 20120209
  Transmission Date: 20120825
  Serious: No
  Sender: FDA-Public Use
  Company Number: US-ASTRAZENECA-2011SE70083

PATIENT
  Age: 79 Year
  Sex: Male

DRUGS (1)
  1. ATACAND [Suspect]
     Route: 048
     Dates: start: 20010101

REACTIONS (3)
  - OROPHARYNGEAL PAIN [None]
  - DYSPHONIA [None]
  - APHONIA [None]
